FAERS Safety Report 6380960-2 (Version None)
Quarter: 2009Q3

REPORT INFORMATION
  Report Type: 
  Country: None (occurrence: None)
  Receive Date: 20090929
  Receipt Date: 20090917
  Transmission Date: 20100115
  Serious: Yes (Other)
  Sender: FDA-Public Use
  Company Number: US-SANOFI-SYNTHELABO-A03200904189

PATIENT

DRUGS (1)
  1. AMBIEN [Suspect]
     Indication: INTENTIONAL DRUG MISUSE
     Dosage: UNK
     Route: 048

REACTIONS (2)
  - INTENTIONAL DRUG MISUSE [None]
  - VICTIM OF SEXUAL ABUSE [None]
